FAERS Safety Report 7048829-8 (Version None)
Quarter: 2010Q4

REPORT INFORMATION
  Report Type: 
  Country: None (occurrence: None)
  Receive Date: 20101018
  Receipt Date: 20101013
  Transmission Date: 20110411
  Serious: Yes (Death)
  Sender: FDA-Public Use
  Company Number: PHFR2010GB04657

PATIENT
  Age: 66 Year
  Sex: Female
  Weight: 79 kg

DRUGS (11)
  1. ALISKIREN [Suspect]
     Indication: HYPERTENSION
     Dosage: 150 MG, QD
     Dates: start: 20100419
  2. ALLOPURINOL [Concomitant]
     Indication: GOUT
     Dosage: 100 MG, QD
     Dates: start: 20080116
  3. AMLODIPINE [Concomitant]
     Indication: HYPERTENSION
     Dosage: 10 MG, QD
     Dates: start: 20030625
  4. ASPIRIN [Concomitant]
     Indication: CEREBROVASCULAR ACCIDENT
     Dosage: 75 MG, QD
     Dates: start: 19930720
  5. ATORVASTATIN [Concomitant]
     Indication: HYPERCHOLESTEROLAEMIA
     Dosage: 40 MG, QD
     Dates: start: 19990211
  6. DIAMICRON [Concomitant]
     Indication: DIABETES MELLITUS
     Dosage: 30 MG, QD
     Dates: start: 20091223
  7. FLUOXETINE [Concomitant]
     Indication: DEPRESSION
     Dosage: 20 MG, QD
     Dates: start: 20100419
  8. FUROSEMIDE [Concomitant]
     Indication: HYPERTENSION
     Dosage: 40 MG, QD
     Dates: start: 20080811
  9. INDORAMIN [Concomitant]
     Indication: HYPERTENSION
     Dosage: 25 MG, QD
     Dates: start: 20011013
  10. LISINOPRIL [Concomitant]
     Indication: HYPERTENSION
     Dosage: 25 MG, QD
     Dates: start: 19930720
  11. LISINOPRIL [Concomitant]
     Dosage: 20 MG, BID

REACTIONS (1)
  - RENAL FAILURE [None]
